FAERS Safety Report 5577755-6 (Version None)
Quarter: 2007Q4

REPORT INFORMATION
  Report Type: 
  Country: None (occurrence: None)
  Receive Date: 20071231
  Receipt Date: 20071217
  Transmission Date: 20080405
  Serious: Yes (Death)
  Sender: FDA-Public Use
  Company Number: DE-ELI_LILLY_AND_COMPANY-DE200711003138

PATIENT
  Sex: Female

DRUGS (7)
  1. BYETTA [Suspect]
     Indication: DIABETES MELLITUS
     Dosage: 5 UG, UNKNOWN
     Route: 058
  2. SIOFOR [Concomitant]
     Dosage: 1000 MG, UNK
     Dates: start: 20001017
  3. DOXEPIN HCL [Concomitant]
     Dosage: 150 MG, UNK
  4. FELODIPINE [Concomitant]
  5. ACCUZIDE [Concomitant]
     Dosage: 20 MG, UNK
  6. METOPROLOL [Concomitant]
  7. MORPHIN HCL [Concomitant]
     Dosage: 30 MG, UNK

REACTIONS (1)
  - SUDDEN CARDIAC DEATH [None]
